FAERS Safety Report 19236958 (Version 1)
Quarter: 2021Q2

REPORT INFORMATION
  Report Type: Spontaneous
  Country: GB (occurrence: GB)
  Receive Date: 20210510
  Receipt Date: 20210510
  Transmission Date: 20210717
  Serious: Yes (Other)
  Sender: FDA-Public Use
  Company Number: GB-GLAXOSMITHKLINE-GB2021097628

PATIENT
  Age: 71 Year

DRUGS (3)
  1. ACICLOVIR [Suspect]
     Active Substance: ACYCLOVIR
     Indication: TINNITUS
     Dosage: UNK
     Route: 065
  2. ASTRAZENECA COVID?19 VACCINE [Suspect]
     Active Substance: AZD-1222
     Indication: PRODUCT USED FOR UNKNOWN INDICATION
     Dosage: DOSE 1
     Route: 065
     Dates: start: 20210205
  3. PREDNISOLONE. [Concomitant]
     Active Substance: PREDNISOLONE
     Indication: PRODUCT USED FOR UNKNOWN INDICATION
     Dosage: UNK
     Route: 065

REACTIONS (3)
  - Bell^s palsy [Unknown]
  - Herpes zoster [Unknown]
  - Facial paralysis [Not Recovered/Not Resolved]

NARRATIVE: CASE EVENT DATE: 20210405
